FAERS Safety Report 4558028-7 (Version None)
Quarter: 2005Q1

REPORT INFORMATION
  Report Type: 
  Country: None (occurrence: None)
  Receive Date: 20050121
  Receipt Date: 20040602
  Transmission Date: 20050727
  Serious: No
  Sender: FDA-Public Use
  Company Number: US-BRISTOL-MYERS SQUIBB COMPANY-12604435

PATIENT
  Age: 66 Year
  Sex: Male
  Weight: 79 kg

DRUGS (4)
  1. SERZONE [Suspect]
     Indication: DEPRESSION
     Dosage: DOASGE RANGED FROM 150 TO 200 MG TWICE DAILY
     Route: 048
     Dates: start: 20000717, end: 20000801
  2. CELEBREX [Concomitant]
  3. GLIPIZIDE [Concomitant]
  4. CAPTOPRIL [Concomitant]

REACTIONS (4)
  - ALANINE AMINOTRANSFERASE INCREASED [None]
  - ANXIETY [None]
  - DEPRESSION [None]
  - SUICIDAL IDEATION [None]
